FAERS Safety Report 6531219-1 (Version None)
Quarter: 2010Q1

REPORT INFORMATION
  Report Type: 
  Country: None (occurrence: None)
  Receive Date: 20100108
  Receipt Date: 20100105
  Transmission Date: 20100710
  Serious: Yes (Life-Threatening)
  Sender: FDA-Public Use
  Company Number: PHEH2010US00469

PATIENT
  Sex: Male

DRUGS (1)
  1. GLEEVEC [Suspect]
     Dosage: 400 MG, QD
     Route: 048
     Dates: end: 20090101

REACTIONS (2)
  - ASTHENIA [None]
  - FEELING ABNORMAL [None]
